FAERS Safety Report 16395375 (Version 1)
Quarter: 2019Q2

REPORT INFORMATION
  Report Type: Spontaneous
  Country: US (occurrence: US)
  Receive Date: 20190605
  Receipt Date: 20190605
  Transmission Date: 20190711
  Serious: Yes (Other)
  Sender: FDA-Public Use
  Company Number: US-JUBILANT CADISTA PHARMACEUTICALS-2019JUB00200

PATIENT
  Sex: Male

DRUGS (3)
  1. PANTOPRAZOLE SODIUM. [Suspect]
     Active Substance: PANTOPRAZOLE SODIUM
     Dosage: UNK
  2. PANTOPRAZOLE [PANTOPRAZOLE] [Suspect]
     Active Substance: PANTOPRAZOLE
     Dosage: UNK
  3. ALPRAZOLAM (MFR UNKNOWN) [Suspect]
     Active Substance: ALPRAZOLAM
     Dosage: UNK

REACTIONS (4)
  - Diarrhoea [Unknown]
  - Aneurysm [Unknown]
  - Arthralgia [Unknown]
  - Gastrointestinal pain [Unknown]
